FAERS Safety Report 5788563-5 (Version None)
Quarter: 2008Q2

REPORT INFORMATION
  Report Type: 
  Country: None (occurrence: None)
  Receive Date: 20080618
  Receipt Date: 20080116
  Transmission Date: 20081010
  Serious: Yes (Other)
  Sender: FDA-Public Use
  Company Number: 200810332US

PATIENT
  Age: 46 Year
  Sex: Male

DRUGS (9)
  1. LANTUS [Suspect]
     Indication: TYPE 1 DIABETES MELLITUS
     Dosage: 22 U
  2. APIDRA [Suspect]
     Indication: TYPE 1 DIABETES MELLITUS
  3. OPTICLIK [Suspect]
     Indication: TYPE 1 DIABETES MELLITUS
  4. COREG [Concomitant]
  5. FERROUS SULFATE TAB [Concomitant]
  6. LEVOTHYROXINE SODIUM [Concomitant]
  7. DICYCLOMINE [Concomitant]
  8. HYDROCHLOROTHIAZIDE, IRBESARTAN (AVALIDE) [Concomitant]
  9. SIMVASTATIN, EZETIMIBE (VYTORIN) [Concomitant]

REACTIONS (2)
  - BLOOD GLUCOSE INCREASED [None]
  - HYPOGLYCAEMIA [None]
